FAERS Safety Report 4741480-1 (Version None)
Quarter: 2005Q3

REPORT INFORMATION
  Report Type: 
  Country: None (occurrence: None)
  Receive Date: 20050808
  Receipt Date: 20050725
  Transmission Date: 20060218
  Serious: Yes (Hospitalization, Other)
  Sender: FDA-Public Use
  Company Number: HQWYE523826JUL05

PATIENT
  Age: 24 Year
  Sex: Female

DRUGS (3)
  1. MINOCYCLINE HCL [Suspect]
     Indication: COMEDONE
     Dosage: SEE IMAGE
     Route: 048
     Dates: start: 20031206, end: 20040515
  2. MINOCYCLINE HCL [Suspect]
     Indication: COMEDONE
     Dosage: SEE IMAGE
     Route: 048
     Dates: start: 20050416, end: 20050516
  3. FLAVITAN (FLAVINE ADENINE DINUCLEOTIDE) [Concomitant]

REACTIONS (6)
  - ALANINE AMINOTRANSFERASE INCREASED [None]
  - ASPARTATE AMINOTRANSFERASE INCREASED [None]
  - BILIRUBIN CONJUGATED INCREASED [None]
  - BLOOD LACTATE DEHYDROGENASE INCREASED [None]
  - THYMOL TURBIDITY TEST INCREASED [None]
  - ZINC SULPHATE TURBIDITY INCREASED [None]
